FAERS Safety Report 6713888-6 (Version None)
Quarter: 2010Q2

REPORT INFORMATION
  Report Type: 
  Country: None (occurrence: None)
  Receive Date: 20100506
  Receipt Date: 20100427
  Transmission Date: 20101027
  Serious: Yes (Other)
  Sender: FDA-Public Use
  Company Number: US-PFIZER INC-2010041496

PATIENT
  Sex: Male
  Weight: 98 kg

DRUGS (3)
  1. CHANTIX [Suspect]
     Indication: SMOKING CESSATION THERAPY
     Dosage: 0.5 MG, 1X/DAY
     Dates: start: 20100101, end: 20100101
  2. CHANTIX [Suspect]
     Dosage: 1 MG, 2X/DAY
     Route: 048
     Dates: start: 20100101
  3. ALCOHOL [Suspect]
     Dosage: UNK
     Dates: start: 20100101

REACTIONS (9)
  - ABNORMAL DREAMS [None]
  - AGGRESSION [None]
  - ALCOHOL USE [None]
  - AMNESIA [None]
  - APATHY [None]
  - HANGOVER [None]
  - IMPAIRED DRIVING ABILITY [None]
  - IMPRISONMENT [None]
  - MEMORY IMPAIRMENT [None]
